FAERS Safety Report 4592534-4 (Version None)
Quarter: 2005Q1

REPORT INFORMATION
  Report Type: 
  Country: None (occurrence: None)
  Receive Date: 20050228
  Receipt Date: 20050215
  Transmission Date: 20050727
  Serious: Yes (Other)
  Sender: FDA-Public Use
  Company Number: JP-JNJFOC-20041203222

PATIENT
  Sex: Female

DRUGS (7)
  1. DUROTEP [Suspect]
     Route: 062
  2. DUROTEP [Suspect]
     Route: 062
  3. DUROTEP [Suspect]
     Indication: CANCER PAIN
     Route: 062
  4. MORPHINE HYDROCHLORIDE [Concomitant]
     Indication: DRUG USE FOR UNKNOWN INDICATION
     Route: 049
  5. PROCHLORPERAZINE MALEATE [Concomitant]
     Indication: DRUG USE FOR UNKNOWN INDICATION
     Route: 049
  6. AMLOPIDINE BESILATE [Concomitant]
     Indication: DRUG USE FOR UNKNOWN INDICATION
     Route: 049
  7. FLAVIN ADENINE DINUCLEOTIDE [Concomitant]
     Indication: DRUG USE FOR UNKNOWN INDICATION
     Route: 049

REACTIONS (1)
  - DELIRIUM [None]
